FAERS Safety Report 23230487 (Version 2)
Quarter: 2024Q3

REPORT INFORMATION
  Report Type: Report from Study
  Country: ZA (occurrence: ZA)
  Receive Date: 20231127
  Receipt Date: 20240923
  Transmission Date: 20241016
  Serious: Yes (Death, Other)
  Sender: SANDOZ
  Company Number: ZA-SANDOZ-SDZ2023ZA046803

PATIENT
  Age: 48 Year
  Sex: Female

DRUGS (2)
  1. ERELZI [Suspect]
     Active Substance: ETANERCEPT-SZZS
     Dosage: UNK
     Route: 065
     Dates: start: 20230824
  2. ERELZI [Suspect]
     Active Substance: ETANERCEPT-SZZS
     Indication: Arthritis
     Dosage: 50 MG, QW
     Route: 058
     Dates: start: 20230824

REACTIONS (6)
  - Hypertension [Fatal]
  - Blood creatinine increased [Unknown]
  - C-reactive protein increased [Unknown]
  - Joint swelling [Unknown]
  - Arthralgia [Unknown]
  - Balance disorder [Unknown]

NARRATIVE: CASE EVENT DATE: 20231120
